FAERS Safety Report 4847419-2 (Version None)
Quarter: 2005Q4

REPORT INFORMATION
  Report Type: 
  Country: None (occurrence: None)
  Receive Date: 20051205
  Receipt Date: 20051128
  Transmission Date: 20060501
  Serious: Yes (Death)
  Sender: FDA-Public Use
  Company Number: USA-2005-0021605

PATIENT
  Age: 48 Year
  Sex: Male
  Weight: 117.9 kg

DRUGS (17)
  1. OXYCONTIN [Suspect]
     Indication: PAIN
     Dosage: 160 MG, TID
  2. AMITRIPTYLINE HCL [Suspect]
  3. OXYMORPHONE HYDROCHLORIDE [Suspect]
  4. METOCLOPRAMIDE [Suspect]
  5. SERTRALINE HCL [Suspect]
  6. CAPTOPRIL [Concomitant]
  7. ELAVIL [Concomitant]
  8. ZAROXOLYN [Concomitant]
  9. LISINOPRIL [Concomitant]
  10. ZOLOFT [Concomitant]
  11. FUROSEMIDE [Concomitant]
  12. SENNOSIDES, DOCUSATE SODIUM (SENNOSIDE A+B, DOCUSATE SODIUM) [Concomitant]
  13. ASPIRIN [Concomitant]
  14. TOPROL-XL [Concomitant]
  15. METFORMIN HCL [Concomitant]
  16. PREVACID [Concomitant]
  17. SENNA (SENNA) [Concomitant]

REACTIONS (9)
  - ACCIDENTAL OVERDOSE [None]
  - CARDIAC FAILURE ACUTE [None]
  - CARDIOMEGALY [None]
  - HEPATIC CIRRHOSIS [None]
  - OBESITY [None]
  - PULMONARY CONGESTION [None]
  - PULMONARY OEDEMA [None]
  - SKIN ULCER [None]
  - SPLENOMEGALY [None]
